FAERS Safety Report 5063680-6 (Version None)
Quarter: 2006Q3

REPORT INFORMATION
  Report Type: 
  Country: None (occurrence: None)
  Receive Date: 20060727
  Receipt Date: 20060405
  Transmission Date: 20061208
  Serious: No
  Sender: FDA-Public Use
  Company Number: US-GLAXOSMITHKLINE-A0600574A

PATIENT
  Age: 44 Year
  Sex: Male

DRUGS (6)
  1. LEXIVA [Suspect]
     Indication: HIV INFECTION
     Dosage: 1TAB PER DAY
     Route: 048
     Dates: start: 20060101
  2. SUSTIVA [Concomitant]
  3. EMTRIVA [Concomitant]
  4. GRAPEFRUIT JUICE [Concomitant]
  5. LANTUS [Concomitant]
  6. MORPHINE [Concomitant]

REACTIONS (1)
  - BLOOD GLUCOSE INCREASED [None]
